FAERS Safety Report 16495039 (Version 1)
Quarter: 2019Q2

REPORT INFORMATION
  Report Type: Spontaneous
  Country: US (occurrence: US)
  Receive Date: 20190628
  Receipt Date: 20190628
  Transmission Date: 20190711
  Serious: Yes (Hospitalization, Other)
  Sender: FDA-Public Use
  Company Number: US-MYLANLABS-2019M1059415

PATIENT
  Age: 59 Year
  Sex: Male

DRUGS (1)
  1. PREDNISONE. [Suspect]
     Active Substance: PREDNISONE
     Indication: RHEUMATOID ARTHRITIS
     Route: 065

REACTIONS (5)
  - Skin ulcer [Recovered/Resolved]
  - Bronchiolitis [Recovered/Resolved]
  - Erysipelothrix infection [Recovered/Resolved]
  - Mitral valve incompetence [Recovered/Resolved]
  - Endocarditis bacterial [Recovered/Resolved]
